FAERS Safety Report 6692645-3 (Version None)
Quarter: 2010Q2

REPORT INFORMATION
  Report Type: 
  Country: None (occurrence: None)
  Receive Date: 20100422
  Receipt Date: 20100412
  Transmission Date: 20101027
  Serious: Yes (Other)
  Sender: FDA-Public Use
  Company Number: US-MERCK-1001USA00515

PATIENT
  Age: 80 Year
  Sex: Male

DRUGS (3)
  1. FOSAMAX [Suspect]
     Indication: OSTEOPOROSIS
     Route: 048
     Dates: start: 20000314, end: 20010201
  2. FOSAMAX [Suspect]
     Route: 048
     Dates: start: 20010416, end: 20080101
  3. TRIAMTERENE [Concomitant]
     Indication: BLOOD PRESSURE
     Route: 048

REACTIONS (18)
  - ANAESTHETIC COMPLICATION [None]
  - BASAL CELL CARCINOMA [None]
  - BONE DISORDER [None]
  - CHEST PAIN [None]
  - CHRONIC OBSTRUCTIVE PULMONARY DISEASE [None]
  - DYSPNOEA [None]
  - EXOSTOSIS [None]
  - GINGIVAL ERYTHEMA [None]
  - HERNIA REPAIR [None]
  - INGUINAL HERNIA [None]
  - LATEX ALLERGY [None]
  - LUNG NEOPLASM [None]
  - MOUTH ULCERATION [None]
  - ORAL TORUS [None]
  - OSTEONECROSIS [None]
  - PARAESTHESIA [None]
  - SQUAMOUS CELL CARCINOMA [None]
  - SUPERFICIAL SPREADING MELANOMA STAGE III [None]
